FAERS Safety Report 17001939 (Version 3)
Quarter: 2020Q3

REPORT INFORMATION
  Report Type: Report from Study
  Country: CA (occurrence: CA)
  Receive Date: 20191106
  Receipt Date: 20200910
  Transmission Date: 20201102
  Serious: Yes (Other)
  Sender: FDA-Public Use
  Company Number: CA-GLAXOSMITHKLINE-CA2019AMR199263

PATIENT
  Sex: Female

DRUGS (2)
  1. SALBUTAMOL SULPHATE [Suspect]
     Active Substance: ALBUTEROL SULFATE
     Indication: PRODUCT USED FOR UNKNOWN INDICATION
     Dosage: UNK
  2. NUCALA [Concomitant]
     Active Substance: MEPOLIZUMAB
     Indication: PRODUCT USED FOR UNKNOWN INDICATION
     Dosage: 100 MG, Z (MONTHLY)
     Dates: start: 20160914

REACTIONS (7)
  - Asthma [Unknown]
  - Neutrophil count increased [Unknown]
  - Blood count abnormal [Unknown]
  - White blood cell count increased [Unknown]
  - Mean cell volume decreased [Unknown]
  - Eosinophil count increased [Unknown]
  - Acute myocardial infarction [Unknown]
